FAERS Safety Report 4464998-8 (Version None)
Quarter: 2004Q4

REPORT INFORMATION
  Report Type: 
  Country: None (occurrence: None)
  Receive Date: 20041004
  Receipt Date: 20040602
  Transmission Date: 20050328
  Serious: No
  Sender: FDA-Public Use
  Company Number: 374032

PATIENT
  Age: 74 Year
  Sex: Male

DRUGS (5)
  1. COREG [Suspect]
     Indication: ILL-DEFINED DISORDER
     Dosage: 1.62MG TWICE PER DAY
     Route: 048
     Dates: start: 20030701, end: 20040101
  2. DIGOXIN [Concomitant]
  3. INSULIN [Concomitant]
  4. MULTIVITAMIN [Concomitant]
  5. COUMADIN [Concomitant]

REACTIONS (3)
  - DYSPNOEA [None]
  - JOINT SWELLING [None]
  - OEDEMA PERIPHERAL [None]
